FAERS Safety Report 13367441 (Version 1)
Quarter: 2017Q1

REPORT INFORMATION
  Report Type: Spontaneous
  Country: IE (occurrence: IE)
  Receive Date: 20170324
  Receipt Date: 20170324
  Transmission Date: 20170429
  Serious: Yes (Death)
  Sender: FDA-Public Use
  Company Number: IE-ASTRAZENECA-2017SE30974

PATIENT
  Age: 21274 Day
  Sex: Female
  Weight: 58 kg

DRUGS (5)
  1. SEROQUEL XR [Suspect]
     Active Substance: QUETIAPINE FUMARATE
     Indication: PSYCHOTIC DISORDER
     Route: 048
  2. PALIPERIDONE PALMITATE [Suspect]
     Active Substance: PALIPERIDONE PALMITATE
     Indication: PSYCHOTIC DISORDER
     Route: 030
  3. DALMANE [Suspect]
     Active Substance: FLURAZEPAM HYDROCHLORIDE
     Indication: PSYCHOTIC DISORDER
     Route: 048
  4. ESOMEPRAZOLE MAGNESIUM. [Concomitant]
     Active Substance: ESOMEPRAZOLE MAGNESIUM
     Route: 048
  5. AKINETON [Concomitant]
     Active Substance: BIPERIDEN HYDROCHLORIDE
     Route: 048

REACTIONS (3)
  - Aspiration [Fatal]
  - Intestinal dilatation [Fatal]
  - Choking [Fatal]

NARRATIVE: CASE EVENT DATE: 20161022
